FAERS Safety Report 4633819-2 (Version None)
Quarter: 2005Q2

REPORT INFORMATION
  Report Type: 
  Country: None (occurrence: None)
  Receive Date: 20050411
  Receipt Date: 20050328
  Transmission Date: 20051028
  Serious: Yes (Hospitalization)
  Sender: FDA-Public Use
  Company Number: CHPA2005US00967

PATIENT
  Age: 5 Year
  Sex: Male
  Weight: 17.7 kg

DRUGS (3)
  1. TRIAMINIC COUGH AND SORE THROAT GRAPE FLAVOR (NCH) (PSEUDOEPHEDRINE HY [Suspect]
     Indication: COUGH
     Dosage: SEE IMAGE,ORAL
     Route: 048
     Dates: end: 20050301
  2. TRIAMINIC COUGH AND SORE THROAT GRAPE FLAVOR (NCH) (PSEUDOEPHEDRINE HY [Suspect]
     Indication: COUGH
     Dosage: SEE IMAGE,ORAL
     Route: 048
     Dates: start: 20050321, end: 20050322
  3. TRIAMINIC COUGH AND SORE THROAT GRAPE FLAVOR (NCH) (PSEUDOEPHEDRINE HY [Suspect]

REACTIONS (5)
  - CONVULSION [None]
  - DECREASED ACTIVITY [None]
  - DRUG TOXICITY [None]
  - OVERDOSE [None]
  - PHARMACEUTICAL PRODUCT COMPLAINT [None]
